FAERS Safety Report 16253067 (Version 1)
Quarter: 2019Q2

REPORT INFORMATION
  Report Type: Spontaneous
  Country: US (occurrence: US)
  Receive Date: 20190429
  Receipt Date: 20190429
  Transmission Date: 20190711
  Serious: No
  Sender: FDA-Public Use
  Company Number: US-SA-2019SA114878

PATIENT
  Age: 45 Year
  Sex: Male

DRUGS (17)
  1. NORMAL SALINE [Concomitant]
     Active Substance: SODIUM CHLORIDE
     Dosage: 0.9%
     Route: 042
     Dates: start: 20190108
  2. ESCITALOPRAM [Concomitant]
     Active Substance: ESCITALOPRAM OXALATE
     Dosage: 1 TAB BY MOUTH EVERYDAY
     Route: 048
     Dates: start: 20181213
  3. RIZATRIPTAN. [Concomitant]
     Active Substance: RIZATRIPTAN
     Dosage: 1 TAB BY MOUTH EVERYDAY
     Route: 048
     Dates: start: 20190328
  4. TACROLIMUS. [Concomitant]
     Active Substance: TACROLIMUS
     Dosage: 2 CAPS TWICE DAILY
     Route: 048
     Dates: start: 20181213
  5. FABRAZYME [Suspect]
     Active Substance: AGALSIDASE BETA
     Indication: FABRY^S DISEASE
     Dosage: 70 MG, EVERY 2 WEEKS
     Route: 041
     Dates: start: 20170123
  6. TOPIRAMATE. [Concomitant]
     Active Substance: TOPIRAMATE
     Dosage: 1 TAB BY MOUTH DAILY
     Route: 048
     Dates: start: 20190328
  7. ACETAMINOPHEN. [Concomitant]
     Active Substance: ACETAMINOPHEN
     Indication: PREMEDICATION
     Dosage: 650 MG BY MOUTH
     Route: 048
     Dates: start: 20190108
  8. SODIUM CHLORIDE. [Concomitant]
     Active Substance: SODIUM CHLORIDE
     Dosage: 0.9% IV
     Route: 042
     Dates: start: 20190108
  9. EPINEPHRINE. [Concomitant]
     Active Substance: EPINEPHRINE
     Indication: ANAPHYLACTIC REACTION
     Dosage: 0.3 MG IM AS NEEDED
     Route: 030
     Dates: start: 20190108
  10. PREDNISONE. [Concomitant]
     Active Substance: PREDNISONE
     Dosage: 3 TABS
     Route: 048
     Dates: start: 20181005
  11. MYCOPHENOLIC ACID. [Concomitant]
     Active Substance: MYCOPHENOLIC ACID
     Dosage: 2 TABS
     Route: 048
     Dates: start: 20180801
  12. FOLIC ACID. [Concomitant]
     Active Substance: FOLIC ACID
     Dosage: 1 TAB
     Route: 048
     Dates: start: 20170123
  13. STERILE WATER [Concomitant]
     Active Substance: WATER
     Dosage: 1 EACH IV
     Route: 042
     Dates: start: 20190108
  14. METOPROLOL TARTRATE. [Concomitant]
     Active Substance: METOPROLOL TARTRATE
     Dosage: 0.5 TAB BY MOUTH
     Route: 048
     Dates: start: 20181005
  15. ASPIRIN [ACETYLSALICYLIC ACID] [Concomitant]
     Active Substance: ASPIRIN
     Dosage: 1 TAB
     Route: 048
     Dates: start: 20170123
  16. ZOLPIDEM [Concomitant]
     Active Substance: ZOLPIDEM\ZOLPIDEM TARTRATE
     Dosage: 1 TAB BY MOUTH EVERYDAY
     Route: 048
     Dates: start: 20190219
  17. DIPHENHYDRAMINE. [Concomitant]
     Active Substance: DIPHENHYDRAMINE
     Indication: ANAPHYLACTIC REACTION
     Dosage: 25 MG, PRN
     Route: 048
     Dates: start: 20190108

REACTIONS (1)
  - Nasopharyngitis [Unknown]
